FAERS Safety Report 14723656 (Version 1)
Quarter: 2018Q2

REPORT INFORMATION
  Report Type: Spontaneous
  Country: US (occurrence: US)
  Receive Date: 20180405
  Receipt Date: 20180405
  Transmission Date: 20180711
  Serious: Yes (Other)
  Sender: FDA-Public Use
  Company Number: US-PURDUE PHARMA-USA-2018-0143227

PATIENT
  Sex: Female

DRUGS (2)
  1. DILAUDID [Suspect]
     Active Substance: HYDROMORPHONE HYDROCHLORIDE
     Indication: PAIN
     Dosage: UNK
     Route: 048
     Dates: start: 2000, end: 20180325
  2. VALIUM [Concomitant]
     Active Substance: DIAZEPAM
     Indication: PRODUCT USED FOR UNKNOWN INDICATION
     Route: 048

REACTIONS (5)
  - Coccygectomy [Recovered/Resolved]
  - Cholecystectomy [Recovered/Resolved]
  - Muscle operation [Recovered/Resolved]
  - Peripheral nerve operation [Recovered/Resolved]
  - Spinal column injury [Unknown]

NARRATIVE: CASE EVENT DATE: 2002
